FAERS Safety Report 6571981-5 (Version None)
Quarter: 2010Q1

REPORT INFORMATION
  Report Type: 
  Country: None (occurrence: None)
  Receive Date: 20100205
  Receipt Date: 20100125
  Transmission Date: 20100710
  Serious: Yes (Hospitalization)
  Sender: FDA-Public Use
  Company Number: US-ELI_LILLY_AND_COMPANY-US200909006048

PATIENT
  Age: 76 Year
  Sex: Female

DRUGS (6)
  1. ZYPREXA [Suspect]
     Indication: MENTAL DISORDER
     Dosage: 5 MG, 3/D
     Dates: start: 20081201
  2. ZYPREXA [Suspect]
     Dosage: 2.5 MG, 4/D
     Dates: start: 20090201, end: 20090801
  3. CLONAZEPAM [Concomitant]
     Indication: NERVOUSNESS
     Dosage: 0.25 MG, UNK
  4. MULTI-VITAMIN [Concomitant]
     Dosage: UNK, DAILY (1/D)
  5. LISINOPRIL [Concomitant]
     Indication: BLOOD PRESSURE
     Dosage: 5 MG, DAILY (1/D)
  6. CRESTOR [Concomitant]
     Indication: BLOOD CHOLESTEROL
     Dosage: 5 MG/KG, DAILY (1/D)

REACTIONS (10)
  - ALTERED STATE OF CONSCIOUSNESS [None]
  - APPENDICITIS [None]
  - APPENDICITIS PERFORATED [None]
  - DISTURBANCE IN ATTENTION [None]
  - GAIT DISTURBANCE [None]
  - INTENTIONAL DRUG MISUSE [None]
  - LUNG INFECTION [None]
  - MENTAL IMPAIRMENT [None]
  - OFF LABEL USE [None]
  - TREMOR [None]
